FAERS Safety Report 16535704 (Version 2)
Quarter: 2019Q4

REPORT INFORMATION
  Report Type: Spontaneous
  Country: DE (occurrence: DE)
  Receive Date: 20190705
  Receipt Date: 20191206
  Transmission Date: 20200122
  Serious: Yes (Hospitalization, Other)
  Sender: FDA-Public Use
  Company Number: DE-TEVA-2019-DE-1071719

PATIENT
  Age: 51 Year
  Sex: Female

DRUGS (11)
  1. COPAXONE [Suspect]
     Active Substance: GLATIRAMER ACETATE
     Indication: MULTIPLE SCLEROSIS
     Dosage: FORM STRENGTH UNKNOWN
     Dates: start: 20190520, end: 20190528
  2. TORASEMID [Concomitant]
     Active Substance: TORSEMIDE
  3. PREDNI TABLINEN [Concomitant]
     Dates: end: 20190611
  4. PREDNI TABLINEN [Concomitant]
     Dates: start: 20190622, end: 20190626
  5. L-THYROX [Concomitant]
     Active Substance: LEVOTHYROXINE SODIUM
  6. PREDNI TABLINEN [Concomitant]
     Dates: start: 20190617, end: 20190621
  7. RAMIPRIL. [Concomitant]
     Active Substance: RAMIPRIL
  8. PREDNI TABLINEN [Concomitant]
     Dates: start: 20190612, end: 20190616
  9. VITAMIN B COMPLEX NOS [Concomitant]
     Active Substance: CYANOCOBALAMIN\PYRIDOXINE HYDROCHLORIDE\RIBOFLAVIN\SODIUM PANTOTHENATE\THIAMINE HYDROCHLORIDE\VITAMIN B COMPLEX
  10. PANTOPRAZOL [Concomitant]
     Active Substance: PANTOPRAZOLE SODIUM
  11. DEKRISTOL [Concomitant]
     Active Substance: CHOLECALCIFEROL

REACTIONS (15)
  - Vomiting [Recovered/Resolved]
  - Hyperventilation [Recovered/Resolved]
  - Thrombocytopenia [Recovering/Resolving]
  - Unresponsive to stimuli [Unknown]
  - Soft tissue necrosis [Recovering/Resolving]
  - Proteinuria [Recovering/Resolving]
  - Anal incontinence [Recovered/Resolved]
  - Urinary incontinence [Recovered/Resolved]
  - Vasculitis [Recovering/Resolving]
  - Chills [Recovered/Resolved]
  - Sense of oppression [Recovered/Resolved]
  - Dyspnoea [Recovered/Resolved]
  - Haematuria [Recovering/Resolving]
  - Acute kidney injury [Recovered/Resolved]
  - Coagulopathy [Recovering/Resolving]

NARRATIVE: CASE EVENT DATE: 201905
